FAERS Safety Report 5624754-1 (Version None)
Quarter: 2008Q1

REPORT INFORMATION
  Report Type: 
  Country: None (occurrence: None)
  Receive Date: 20080213
  Receipt Date: 20080206
  Transmission Date: 20080703
  Serious: Yes (Hospitalization)
  Sender: FDA-Public Use
  Company Number: FR-MERCK-0802FRA00032

PATIENT
  Age: 85 Year
  Sex: Male

DRUGS (7)
  1. CANCIDAS [Suspect]
     Indication: CANDIDA SEPSIS
     Route: 042
     Dates: start: 20070920, end: 20070920
  2. CANCIDAS [Suspect]
     Route: 048
     Dates: start: 20070921, end: 20071119
  3. FLUCONAZOLE [Concomitant]
     Indication: CANDIDA SEPSIS
     Route: 042
     Dates: end: 20070919
  4. ESOMEPRAZOLE MAGNESIUM [Concomitant]
     Indication: DUODENAL ULCER, OBSTRUCTIVE
     Route: 042
  5. TERBUTALINE SULFATE [Concomitant]
     Indication: CHRONIC OBSTRUCTIVE PULMONARY DISEASE
  6. NADROPARIN [Concomitant]
     Indication: THROMBOSIS PROPHYLAXIS
     Route: 058
  7. POLYETHYLENE GLYCOL 4000 [Concomitant]
     Indication: CONSTIPATION
     Route: 048

REACTIONS (1)
  - PATHOGEN RESISTANCE [None]
